FAERS Safety Report 8285954-8 (Version None)
Quarter: 2012Q2

REPORT INFORMATION
  Report Type: 
  Country: None (occurrence: None)
  Receive Date: 20120415
  Receipt Date: 20120404
  Transmission Date: 20120825
  Serious: Yes (Hospitalization, Other)
  Sender: FDA-Public Use
  Company Number: US-BRISTOL-MYERS SQUIBB COMPANY-16503013

PATIENT
  Age: 64 Year
  Sex: Female
  Weight: 101 kg

DRUGS (2)
  1. ORENCIA [Suspect]
     Route: 042
     Dates: end: 20120101
  2. DILAUDID [Concomitant]

REACTIONS (5)
  - NEUROBLASTOMA [None]
  - BLADDER INJURY [None]
  - FALL [None]
  - COLON INJURY [None]
  - JOINT INJURY [None]
